FAERS Safety Report 9956850 (Version 1)
Quarter: 2014Q1

REPORT INFORMATION
  Report Type: Report from Study
  Country: US (occurrence: US)
  Receive Date: 20140304
  Receipt Date: 20140304
  Transmission Date: 20141002
  Serious: No
  Sender: FDA-Public Use
  Company Number: US-ABBVIE-13P-163-1101509-00

PATIENT
  Age: 61 Year
  Sex: Male

DRUGS (5)
  1. HUMIRA [Suspect]
     Indication: PSORIASIS
     Route: 058
     Dates: start: 20130519, end: 20130519
  2. HUMIRA [Suspect]
     Route: 058
     Dates: start: 20130602
  3. CYMBALTA [Concomitant]
     Indication: PRODUCT USED FOR UNKNOWN INDICATION
  4. SIMVASTATIN [Concomitant]
     Indication: BLOOD CHOLESTEROL INCREASED
  5. LISINOPRIL [Concomitant]
     Indication: HYPERTENSION

REACTIONS (1)
  - Injection site bruising [Recovered/Resolved]
